FAERS Safety Report 10771206 (Version 1)
Quarter: 2015Q1

REPORT INFORMATION
  Report Type: Spontaneous
  Country: US (occurrence: US)
  Receive Date: 20150206
  Receipt Date: 20150206
  Transmission Date: 20150721
  Serious: Yes (Hospitalization)
  Sender: FDA-Public Use
  Company Number: US-EXELIXIS-CABO-13005176

PATIENT
  Age: 44 Year
  Sex: Male
  Weight: 86 kg

DRUGS (13)
  1. MIRTAZAPINE. [Concomitant]
     Active Substance: MIRTAZAPINE
  2. SENNA LAXATIVE [Concomitant]
     Active Substance: SENNOSIDES A AND B
  3. ALLOPURINOL. [Concomitant]
     Active Substance: ALLOPURINOL
  4. ATENOLOL. [Concomitant]
     Active Substance: ATENOLOL
  5. MORPHINE [Concomitant]
     Active Substance: MORPHINE
  6. ZOFRAN [Concomitant]
     Active Substance: ONDANSETRON HYDROCHLORIDE
  7. VITAMIN D [Concomitant]
     Active Substance: CHOLECALCIFEROL
  8. METFORMIN [Concomitant]
     Active Substance: METFORMIN HYDROCHLORIDE
  9. MAGNESIUM [Concomitant]
     Active Substance: MAGNESIUM
  10. CHLORPROMAZINE [Concomitant]
     Active Substance: CHLORPROMAZINE
  11. ISOSORBIDE [Concomitant]
     Active Substance: ISOSORBIDE
  12. MONONITRATE [Concomitant]
  13. COMETRIQ [Suspect]
     Active Substance: CABOZANTINIB S-MALATE
     Indication: THYROID CANCER
     Dosage: 140 MG, QD
     Route: 048
     Dates: start: 20130309

REACTIONS (3)
  - Constipation [Recovered/Resolved]
  - Urinary tract infection [Recovered/Resolved]
  - Dehydration [Recovered/Resolved]

NARRATIVE: CASE EVENT DATE: 20130408
